FAERS Safety Report 9376142 (Version 1)
Quarter: 2013Q2

REPORT INFORMATION
  Report Type: Spontaneous
  Country: FR (occurrence: FR)
  Receive Date: 20130630
  Receipt Date: 20130630
  Transmission Date: 20140414
  Serious: Yes (Other)
  Sender: FDA-Public Use
  Company Number: FR-TEVA-416200ISR

PATIENT
  Age: 62 Year
  Sex: Male

DRUGS (6)
  1. FUROSEMIDE TEVA 40 MG [Suspect]
     Dosage: SCORED TABLET
     Dates: start: 201303
  2. FUROSEMIDE TEVA 40 MG [Suspect]
     Dosage: SCORED TABLET
     Dates: start: 201303, end: 20130609
  3. CARDENSIEL [Concomitant]
  4. INSULIN [Concomitant]
  5. RAMIPRIL [Concomitant]
  6. IXPRIM [Concomitant]

REACTIONS (4)
  - Dyspnoea [Recovering/Resolving]
  - Somnolence [Recovering/Resolving]
  - Dizziness [Recovering/Resolving]
  - Headache [Recovering/Resolving]
